FAERS Safety Report 11944205 (Version 1)
Quarter: 2016Q1

REPORT INFORMATION
  Report Type: Spontaneous
  Country: US (occurrence: US)
  Receive Date: 20160125
  Receipt Date: 20160125
  Transmission Date: 20160526
  Serious: No
  Sender: FDA-Public Use
  Company Number: US-UNITED THERAPEUTICS-UNT-2015-010429

PATIENT
  Age: 60 Year
  Sex: Female
  Weight: 84.81 kg

DRUGS (6)
  1. TYVASO [Suspect]
     Active Substance: TREPROSTINIL
     Indication: PULMONARY ARTERIAL HYPERTENSION
     Dosage: 18-54 MICROGRAMS, QID
     Dates: start: 20150813
  2. TYVASO [Suspect]
     Active Substance: TREPROSTINIL
     Dosage: UNK
  3. TYVASO [Suspect]
     Active Substance: TREPROSTINIL
     Dosage: UNK
  4. OPSUMIT [Concomitant]
     Active Substance: MACITENTAN
     Indication: PRODUCT USED FOR UNKNOWN INDICATION
  5. TYVASO [Suspect]
     Active Substance: TREPROSTINIL
     Dosage: UNK
  6. ADCIRCA [Concomitant]
     Active Substance: TADALAFIL
     Indication: PRODUCT USED FOR UNKNOWN INDICATION

REACTIONS (20)
  - Fatigue [Recovering/Resolving]
  - Pain [Unknown]
  - Visual impairment [Unknown]
  - Diarrhoea [Recovering/Resolving]
  - Migraine [Not Recovered/Not Resolved]
  - Pain in jaw [Unknown]
  - Oedema [Recovering/Resolving]
  - Influenza like illness [Recovered/Resolved]
  - Cough [Recovered/Resolved]
  - Nasopharyngitis [Unknown]
  - Bronchitis [Unknown]
  - Skin discolouration [Unknown]
  - Cellulitis [Unknown]
  - Somnolence [Unknown]
  - Pyrexia [Unknown]
  - Dyspnoea exertional [Unknown]
  - Periorbital oedema [Unknown]
  - Dizziness [Recovered/Resolved]
  - Oropharyngeal pain [Unknown]
  - Headache [Unknown]

NARRATIVE: CASE EVENT DATE: 201508
